FAERS Safety Report 6727514-3 (Version None)
Quarter: 2010Q2

REPORT INFORMATION
  Report Type: 
  Country: None (occurrence: None)
  Receive Date: 20100517
  Receipt Date: 20100510
  Transmission Date: 20101027
  Serious: Yes (Other)
  Sender: FDA-Public Use
  Company Number: US-ASTRAZENECA-2010SE06539

PATIENT
  Age: 13 Year
  Sex: Female

DRUGS (6)
  1. SEROQUEL [Suspect]
     Indication: BIPOLAR DISORDER
     Route: 048
     Dates: start: 20080101
  2. SEROQUEL [Suspect]
     Indication: MOOD ALTERED
     Route: 048
     Dates: start: 20080101
  3. SEROQUEL [Suspect]
     Route: 048
     Dates: start: 20090101
  4. SEROQUEL [Suspect]
     Route: 048
     Dates: start: 20090101
  5. TRAZODONE HCL [Concomitant]
     Route: 048
     Dates: start: 20090101
  6. CLONIDINE [Concomitant]
     Route: 048
     Dates: start: 20090101

REACTIONS (3)
  - FALL [None]
  - HYPOGLYCAEMIA [None]
  - LOSS OF CONSCIOUSNESS [None]
